FAERS Safety Report 7230316-5 (Version None)
Quarter: 2011Q1

REPORT INFORMATION
  Report Type: 
  Country: None (occurrence: None)
  Receive Date: 20110118
  Receipt Date: 20110111
  Transmission Date: 20110831
  Serious: No
  Sender: FDA-Public Use
  Company Number: US-PFIZER INC-2011008659

PATIENT
  Sex: Male

DRUGS (1)
  1. EFFEXOR XR [Suspect]
     Indication: DEPRESSION
     Dosage: 150MG QD AND 75 MGX3 QD
     Route: 048
     Dates: start: 20080110

REACTIONS (1)
  - DRUG WITHDRAWAL SYNDROME [None]
